FAERS Safety Report 9090182 (Version 1)
Quarter: 2013Q1

REPORT INFORMATION
  Report Type: Report from Study
  Country: US (occurrence: US)
  Receive Date: 20130131
  Receipt Date: 20130131
  Transmission Date: 20140127
  Serious: No
  Sender: FDA-Public Use
  Company Number: US-ABBOTT-12P-163-1006793-00

PATIENT
  Age: 70 Year
  Sex: Female

DRUGS (8)
  1. HUMIRA [Suspect]
     Indication: CROHN^S DISEASE
     Dates: start: 20121105
  2. PENTASA [Concomitant]
     Indication: CROHN^S DISEASE
  3. PREMPRO [Concomitant]
     Indication: HORMONE REPLACEMENT THERAPY
     Dosage: 0.3/1.5MG DAILY
  4. DIOVAN [Concomitant]
     Indication: HYPERTENSION
     Dosage: 320MG DAILY
  5. TRILIPIX [Concomitant]
     Indication: BLOOD TRIGLYCERIDES INCREASED
     Dosage: 135MG DAILY
  6. NEXIUM [Concomitant]
     Indication: GASTROOESOPHAGEAL REFLUX DISEASE
     Dosage: 20MG DAILY
  7. ZYRTEC [Concomitant]
     Indication: HYPERSENSITIVITY
     Dosage: 10MG DAILY
  8. FLONASE [Concomitant]
     Indication: HYPERSENSITIVITY
     Dosage: 1-2 TIMES PER DAY

REACTIONS (1)
  - Injection site pain [Recovered/Resolved]
